FAERS Safety Report 13382150 (Version 1)
Quarter: 2017Q1

REPORT INFORMATION
  Report Type: Spontaneous
  Country: JP (occurrence: JP)
  Receive Date: 20170329
  Receipt Date: 20170329
  Transmission Date: 20170429
  Serious: Yes (Hospitalization)
  Sender: FDA-Public Use
  Company Number: PHJP2017JP004190

PATIENT
  Age: 69 Year
  Sex: Female
  Weight: 30 kg

DRUGS (3)
  1. VONOPRAZAN [Concomitant]
     Active Substance: VONOPRAZAN
     Indication: PRODUCT USED FOR UNKNOWN INDICATION
     Dosage: UNK
     Route: 065
  2. NEORAL [Suspect]
     Active Substance: CYCLOSPORINE
     Indication: STILL^S DISEASE ADULT ONSET
     Dosage: UNK
     Route: 048
  3. NEORAL [Suspect]
     Active Substance: CYCLOSPORINE
     Indication: STILL^S DISEASE ADULT ONSET
     Dosage: 100 MG, UNK
     Route: 048

REACTIONS (3)
  - Still^s disease adult onset [Recovering/Resolving]
  - Condition aggravated [Recovering/Resolving]
  - Product use issue [Unknown]
